FAERS Safety Report 8861709 (Version 1)
Quarter: 2012Q4

REPORT INFORMATION
  Report Type: 
  Country: US (occurrence: None)
  Receive Date: 20121025
  Receipt Date: 20121025
  Transmission Date: 20130627
  Serious: Yes (Hospitalization)
  Sender: FDA-Public Use
  Company Number: None

PATIENT
  Sex: Female
  Weight: 62.7 kg

DRUGS (3)
  1. CYCLOPHOSPHAMIDE [Suspect]
     Dates: end: 20121002
  2. DOXORUBICIN HYDROCHLORIDE [Suspect]
     Dates: end: 20121002
  3. PEGFILGRASTIM [Suspect]
     Dates: end: 20121011

REACTIONS (4)
  - Febrile neutropenia [None]
  - Anaemia [None]
  - Asthenia [None]
  - Urinary tract infection [None]
